FAERS Safety Report 17382952 (Version 3)
Quarter: 2020Q4

REPORT INFORMATION
  Report Type: Spontaneous
  Country: CZ (occurrence: CZ)
  Receive Date: 20200206
  Receipt Date: 20201217
  Transmission Date: 20210113
  Serious: Yes (Life-Threatening, Hospitalization, Other)
  Sender: FDA-Public Use
  Company Number: CZ-BAXTER-2020BAX002123

PATIENT
  Age: 56 Year
  Sex: Male

DRUGS (23)
  1. ENDOXAN 1G [Suspect]
     Active Substance: CYCLOPHOSPHAMIDE
     Dosage: 700 MG/M2 EVERY 28 DAYS, 7TH CYCLE COMBINATION THERAPY WITH VENETOCLAX, RITUXIMAB AND CYCLOPHOSPHAMI
     Route: 065
  2. RITUXIMAB. [Suspect]
     Active Substance: RITUXIMAB
     Dosage: 375 MG/M2 (BR THERAPY)
     Route: 065
     Dates: start: 201504, end: 201508
  3. RITUXIMAB. [Suspect]
     Active Substance: RITUXIMAB
     Dosage: 375 MG/M2 (7TH CYCLE, COMBINATION WITH VENETOCLAX AND CYCLOPHOSPHAMIDE)
     Route: 065
  4. IBRUTINIB [Suspect]
     Active Substance: IBRUTINIB
     Indication: CHRONIC LYMPHOCYTIC LEUKAEMIA
     Dosage: 140 MG, DAILY DOSE DECREASED/REDUCED
     Route: 048
  5. IBRUTINIB [Suspect]
     Active Substance: IBRUTINIB
     Indication: DISEASE PROGRESSION
     Dosage: 280 MG, DAILY
     Route: 048
     Dates: start: 201510
  6. VENETOCLAX. [Suspect]
     Active Substance: VENETOCLAX
     Dosage: 400 MG DAILY, 7TH CYCLE COMBINATION THERAPY WITH VENETOCLAX, RITUXIMAB AND CYCLOPHOSPHAMIDE
     Route: 048
     Dates: start: 2019, end: 2019
  7. VENETOCLAX. [Suspect]
     Active Substance: VENETOCLAX
     Dosage: 400 MG DAILY, INITIAL COMBINATION THERAPY WITH VENETOCLAX, RITUXIMAB AND CYCLOPHOSPHAMIDE
     Route: 048
     Dates: start: 20181109
  8. ENDOXAN 1G [Suspect]
     Active Substance: CYCLOPHOSPHAMIDE
     Indication: DISEASE PROGRESSION
     Dosage: 700 MG/M2 EVERY 28 DAYS, 6TH CYCLE COMBINATION THERAPY WITH VENETOCLAX, RITUXIMAB AND CYCLOPHOSPHAMI
     Route: 065
     Dates: start: 20190423, end: 20190423
  9. RITUXIMAB. [Suspect]
     Active Substance: RITUXIMAB
     Indication: CHRONIC LYMPHOCYTIC LEUKAEMIA
     Dosage: 375 MG/M2 (FCR THERAPY)
     Route: 065
     Dates: start: 201301, end: 201307
  10. RITUXIMAB. [Suspect]
     Active Substance: RITUXIMAB
     Dosage: 375 MG/M2 (6TH CYCLE, COMBINATION WITH VENETOCLAX AND CYCLOPHOSPHAMIDE)
     Route: 065
     Dates: end: 20190423
  11. RITUXIMAB. [Suspect]
     Active Substance: RITUXIMAB
     Dosage: 375 MG/M2 (INITIAL COMBINATION WITH VENETOCLAX AND CYCLOPHOSPHAMIDE)
     Route: 065
     Dates: start: 20181109
  12. CYCLOPHOSPHAMIDE;FLUDARABINE [Suspect]
     Active Substance: CYCLOPHOSPHAMIDE\FLUDARABINE
     Dosage: UNK (FCR THERAPY)
     Route: 065
     Dates: start: 201301, end: 201307
  13. VENETOCLAX. [Suspect]
     Active Substance: VENETOCLAX
     Dosage: UNK
     Route: 048
     Dates: start: 20160624
  14. VENETOCLAX. [Suspect]
     Active Substance: VENETOCLAX
     Dosage: 400 MG DAILY
     Route: 065
     Dates: start: 201811
  15. VENETOCLAX. [Suspect]
     Active Substance: VENETOCLAX
     Indication: CHRONIC LYMPHOCYTIC LEUKAEMIA
     Dosage: 400 MG DAILY, 6TH CYCLE COMBINATION THERAPY WITH VENETOCLAX, RITUXIMAB AND CYCLOPHOSPHAMIDE
     Route: 048
     Dates: start: 20190423, end: 2019
  16. ENDOXAN 1G [Suspect]
     Active Substance: CYCLOPHOSPHAMIDE
     Dosage: 700 MG/M2 EVERY 28 DAYS, LAST CYCLE COMBINATION THERAPY WITH VENETOCLAX, RITUXIMAB AND CYCLOPHOSPHAM
     Route: 065
  17. RITUXIMAB. [Suspect]
     Active Substance: RITUXIMAB
     Dosage: 375 MG/M2 (LAST CYCLE, COMBINATION WITH VENETOCLAX AND CYCLOPHOSPHAMIDE)
     Route: 065
  18. CYCLOPHOSPHAMIDE;FLUDARABINE [Suspect]
     Active Substance: CYCLOPHOSPHAMIDE\FLUDARABINE
     Indication: CHRONIC LYMPHOCYTIC LEUKAEMIA
     Dosage: UNK (FCR THERAPY)
     Route: 065
     Dates: start: 201010, end: 201107
  19. BENDAMUSTINE [Suspect]
     Active Substance: BENDAMUSTINE
     Indication: CHRONIC LYMPHOCYTIC LEUKAEMIA
     Dosage: UNK (BR THERAPY)
     Route: 065
     Dates: start: 201504, end: 201508
  20. OFATUMUMAB [Suspect]
     Active Substance: OFATUMUMAB
     Indication: CHRONIC LYMPHOCYTIC LEUKAEMIA
     Dosage: UNK
     Route: 065
     Dates: start: 201312, end: 201410
  21. ENDOXAN 1G [Suspect]
     Active Substance: CYCLOPHOSPHAMIDE
     Indication: CHRONIC LYMPHOCYTIC LEUKAEMIA
     Dosage: 700 MG/M2 EVERY 28 DAYS, INITIAL COMBINATION THERAPY WITH VENETOCLAX, RITUXIMAB AND CYCLOPHOSPHAMIDE
     Route: 065
     Dates: start: 20181109
  22. RITUXIMAB. [Suspect]
     Active Substance: RITUXIMAB
     Dosage: 375 MG/M2 (FCR THERAPY)
     Route: 065
     Dates: start: 201010, end: 201107
  23. VENETOCLAX. [Suspect]
     Active Substance: VENETOCLAX
     Indication: DISEASE PROGRESSION
     Dosage: 400 MG DAILY, LAST CYCLE COMBINATION THERAPY WITH VENETOCLAX, RITUXIMAB AND CYCLOPHOSPHAMIDE
     Route: 048
     Dates: start: 2019

REACTIONS (10)
  - Drug intolerance [Unknown]
  - Neutropenia [Unknown]
  - Off label use [Unknown]
  - Drug resistance [Unknown]
  - Cellulitis [Unknown]
  - Nervous system disorder [Unknown]
  - Disease progression [Not Recovered/Not Resolved]
  - Therapeutic product effect incomplete [Unknown]
  - Incorrect dose administered [Unknown]
  - Infection [Unknown]

NARRATIVE: CASE EVENT DATE: 201603
